FAERS Safety Report 11124219 (Version 1)
Quarter: 2015Q2

REPORT INFORMATION
  Report Type: Spontaneous
  Country: NO (occurrence: None)
  Receive Date: 20150518
  Receipt Date: 20150518
  Transmission Date: 20150821
  Serious: Yes (Other)
  Sender: FDA-Public Use
  Company Number: FK201502285

PATIENT
  Sex: Male

DRUGS (5)
  1. METHYLPREDISOLONE [Suspect]
     Active Substance: METHYLPREDNISOLONE
     Indication: GOODPASTURE^S SYNDROME
     Route: 042
  2. CYCLOPHOSPHAMIDE (MANUFACTURER UNKNOWN) (CYCLOPHOSPHAMIDE) (CYCLOPHOSPHAMIDE) [Suspect]
     Active Substance: CYCLOPHOSPHAMIDE
     Indication: GOODPASTURE^S SYNDROME
     Route: 048
  3. PREDNISOLONE (PREDNISOLONE) (PREDNISOLONE) [Suspect]
     Active Substance: PREDNISOLONE
     Indication: GOODPASTURE^S SYNDROME
     Route: 048
  4. COTRIMOXAZOLE (BACTRIM) [Concomitant]
  5. CEFOTAXINE [Concomitant]

REACTIONS (4)
  - Cytomegalovirus infection [None]
  - Clostridium colitis [None]
  - Bone marrow failure [None]
  - Leukopenia [None]
